FAERS Safety Report 10195114 (Version 5)
Quarter: 2014Q3

REPORT INFORMATION
  Report Type: Report from Study
  Country: GB (occurrence: GB)
  Receive Date: 20140526
  Receipt Date: 20140701
  Transmission Date: 20150326
  Serious: Yes (Other)
  Sender: FDA-Public Use
  Company Number: GB-THROMBOGENICS NV-JET-2014-262

PATIENT
  Sex: Female

DRUGS (5)
  1. JETREA [Suspect]
     Active Substance: OCRIPLASMIN
     Indication: VITREOUS ADHESIONS
     Dosage: 0.125 MG, ONE TIME DOSE
     Route: 031
     Dates: start: 20140415, end: 20140415
  2. JETREA [Suspect]
     Active Substance: OCRIPLASMIN
     Indication: MACULAR HOLE
  3. SIMVASTATIN. [Concomitant]
     Active Substance: SIMVASTATIN
     Indication: BLOOD CHOLESTEROL INCREASED
     Dosage: 40 MG, QD
  4. CLOPIDOGREL [Concomitant]
     Active Substance: CLOPIDOGREL BISULFATE
     Indication: CORONARY ARTERY DISEASE
     Dosage: 75 MG, QD
  5. RANITIDINE [Concomitant]
     Active Substance: RANITIDINE\RANITIDINE HYDROCHLORIDE
     Indication: GASTROINTESTINAL DISORDER
     Dosage: 300 MG, QD

REACTIONS (17)
  - Retinal injury [Unknown]
  - Disease progression [Recovered/Resolved]
  - Photopsia [Unknown]
  - Metamorphopsia [Unknown]
  - Ocular hyperaemia [Unknown]
  - Visual acuity reduced [Recovering/Resolving]
  - Pupillary reflex impaired [Not Recovered/Not Resolved]
  - Halo vision [Unknown]
  - Ciliary zonular dehiscence [Recovered/Resolved]
  - Photophobia [Unknown]
  - Vision blurred [Unknown]
  - Chromatopsia [Not Recovered/Not Resolved]
  - Subretinal fluid [Unknown]
  - Macular hole [Recovered/Resolved]
  - Eye pain [Unknown]
  - Vitreous floaters [Unknown]
  - Retinogram abnormal [Unknown]

NARRATIVE: CASE EVENT DATE: 20140416
